FAERS Safety Report 20317674 (Version 1)
Quarter: 2022Q1

REPORT INFORMATION
  Report Type: Spontaneous
  Country: US (occurrence: US)
  Receive Date: 20220110
  Receipt Date: 20220110
  Transmission Date: 20220423
  Serious: Yes (Death)
  Sender: FDA-Public Use
  Company Number: US-AMNEAL PHARMACEUTICALS-2021-AMRX-05211

PATIENT

DRUGS (4)
  1. DOXORUBICIN HYDROCHLORIDE [Suspect]
     Active Substance: DOXORUBICIN HYDROCHLORIDE
     Indication: Hodgkin^s disease
     Dosage: 40 MILLIGRAM/SQ. METER, ON DAY 1 FOR 6 CYCLES FOR EVERY 21 DAYS
     Route: 065
  2. PREDNISONE [Suspect]
     Active Substance: PREDNISONE
     Indication: Hodgkin^s disease
     Dosage: 40 MILLIGRAM/SQ. METE, ON DAY 1-5, FOR 6 CYCLES FOR EVERY 21 DAYS
     Route: 065
  3. VINBLASTINE [Suspect]
     Active Substance: VINBLASTINE
     Indication: Hodgkin^s disease
     Dosage: 6 MILLIGRAM/SQ. METER, ON DAY 1, FOR 6 CYCLES FOR  EVERY 21 DAYS 6 CYCLE
     Route: 065
  4. BENDAMUSTINE [Suspect]
     Active Substance: BENDAMUSTINE
     Indication: Hodgkin^s disease
     Dosage: 120 MILLIGRAM/SQ. METER, ON DAY 1, FOR 6 CYCLES FOR EVERY 21 DAYS
     Route: 065

REACTIONS (1)
  - Toxicity to various agents [Fatal]
